FAERS Safety Report 7064799-0 (Version None)
Quarter: 2010Q4

REPORT INFORMATION
  Report Type: 
  Country: None (occurrence: None)
  Receive Date: 20101027
  Receipt Date: 20101014
  Transmission Date: 20110411
  Serious: Yes (Other)
  Sender: FDA-Public Use
  Company Number: ES-ELI_LILLY_AND_COMPANY-ES201010005352

PATIENT
  Age: 44 Year
  Sex: Male

DRUGS (10)
  1. OLANZAPINE [Suspect]
     Dosage: 20 MG, DAILY (1/D)
     Dates: start: 20030101
  2. OLANZAPINE [Suspect]
     Dosage: 30 MG, DAILY (1/D)
  3. METFORMIN HCL [Concomitant]
  4. CITALOPRAM HYDROBROMIDE [Concomitant]
  5. CARBAMAZEPINE [Concomitant]
  6. MIRTAZAPINE [Concomitant]
  7. CLORAZEPATE DIPOTASSIUM [Concomitant]
  8. DIAZEPAM [Concomitant]
  9. LEVOMEPROMAZINE [Concomitant]
  10. LOVAZA [Concomitant]

REACTIONS (4)
  - DYSLIPIDAEMIA [None]
  - HEPATIC STEATOSIS [None]
  - HEPATOSPLENOMEGALY [None]
  - XANTHOMA [None]
